FAERS Safety Report 16158315 (Version 1)
Quarter: 2019Q2

REPORT INFORMATION
  Report Type: Spontaneous
  Country: BR (occurrence: BR)
  Receive Date: 20190404
  Receipt Date: 20190404
  Transmission Date: 20190711
  Serious: Yes (Other)
  Sender: FDA-Public Use
  Company Number: BR-009507513-1904BRA001297

PATIENT
  Age: 39 Year
  Sex: Female
  Weight: 79 kg

DRUGS (2)
  1. NUVARING [Suspect]
     Active Substance: ETHINYL ESTRADIOL\ETONOGESTREL
     Indication: CONTRACEPTION
     Dosage: 1 VAGINAL RING FOR 21 DAYS AND 7 DAYS OF PAUSE
     Route: 067
     Dates: start: 201902
  2. LOSARTAN POTASSIUM. [Suspect]
     Active Substance: LOSARTAN POTASSIUM
     Indication: RENAL DISORDER PROPHYLAXIS
     Dosage: 1 TABLET, 25 MILLIGRAM, ONCE A DAY
     Route: 048

REACTIONS (3)
  - Hepatic steatosis [Unknown]
  - Product use in unapproved indication [Unknown]
  - Type 2 diabetes mellitus [Not Recovered/Not Resolved]
